FAERS Safety Report 7583952-0 (Version None)
Quarter: 2011Q2

REPORT INFORMATION
  Report Type: 
  Country: None (occurrence: None)
  Receive Date: 20110623
  Receipt Date: 20110608
  Transmission Date: 20111010
  Serious: Yes (Hospitalization, Other)
  Sender: FDA-Public Use
  Company Number: 2011MA006935

PATIENT
  Age: 56 Year
  Sex: Female

DRUGS (5)
  1. FISH OIL [Concomitant]
  2. BUPROPION HYDROCHLORIDE (WELLBUTRIN XL) [Suspect]
     Indication: DEPRESSION
     Dosage: 450 MG
  3. DOVONEX [Concomitant]
  4. ASCORBIC ACID [Suspect]
  5. GLUCOSAMINE [Concomitant]

REACTIONS (3)
  - CONDITION AGGRAVATED [None]
  - PSORIASIS [None]
  - STEVENS-JOHNSON SYNDROME [None]
